FAERS Safety Report 6665455-0 (Version None)
Quarter: 2010Q2

REPORT INFORMATION
  Report Type: 
  Country: None (occurrence: None)
  Receive Date: 20100402
  Receipt Date: 20100322
  Transmission Date: 20101027
  Serious: Yes (Hospitalization)
  Sender: FDA-Public Use
  Company Number: ES-ELI_LILLY_AND_COMPANY-ES201003006207

PATIENT
  Sex: Male
  Weight: 79 kg

DRUGS (5)
  1. PEMETREXED [Suspect]
     Indication: NON-SMALL CELL LUNG CANCER
     Dosage: 750 MG, DAY 1 EVERY 21 DAYS
     Route: 042
     Dates: start: 20100217
  2. PEMETREXED [Suspect]
     Dosage: 470 MG, DAY 1 EVERY 21 DAYS
     Route: 042
  3. FOLIC ACID [Concomitant]
     Indication: PROPHYLAXIS
     Dates: start: 20100217
  4. VITAMIN B-12 [Concomitant]
     Indication: PROPHYLAXIS
     Dates: start: 20100217
  5. DEXAMETHASONE [Concomitant]
     Indication: PROPHYLAXIS
     Dates: start: 20100217

REACTIONS (1)
  - EPIDERMAL NECROSIS [None]
